FAERS Safety Report 8671675 (Version 2)
Quarter: 2012Q4

REPORT INFORMATION
  Report Type: 
  Country: US (occurrence: US)
  Receive Date: 20120718
  Receipt Date: 20121012
  Transmission Date: 20130627
  Serious: Yes (Hospitalization)
  Sender: FDA-Public Use
  Company Number: US-B.I. PHARMACEUTICALS,INC./RIDGEFIELD-2012-BP-15508BP

PATIENT
  Age: 59 Year
  Sex: Male
  Weight: 103.87 kg

DRUGS (10)
  1. TRADJENTA [Suspect]
     Dosage: 5 mg
     Dates: start: 20120202, end: 20120430
  2. METFORMIN [Concomitant]
  3. LIPITOR [Concomitant]
     Dosage: 40 mg
  4. TRICOR [Concomitant]
     Dosage: 145 mg
  5. ASPIRIN [Concomitant]
     Dosage: 81 mg
  6. METOPROLOL [Concomitant]
     Dosage: 100 mg
  7. FISH OIL [Concomitant]
     Dosage: 2000 mg
  8. OPANA ER [Concomitant]
     Dosage: 80 mg
  9. LISINOPRIL [Concomitant]
     Dosage: 10 mg
  10. NEURONTIN [Concomitant]
     Dosage: 3200 mg

REACTIONS (1)
  - Pancreatitis [Unknown]
